FAERS Safety Report 5070768-2 (Version None)
Quarter: 2006Q3

REPORT INFORMATION
  Report Type: 
  Country: None (occurrence: None)
  Receive Date: 20060804
  Receipt Date: 20060508
  Transmission Date: 20061208
  Serious: Yes (Hospitalization)
  Sender: FDA-Public Use
  Company Number: DE-BAYER-200610613BVD

PATIENT
  Sex: Male

DRUGS (1)
  1. AVELOX [Suspect]
     Indication: INFECTION PROPHYLAXIS
     Route: 042

REACTIONS (5)
  - DRUG INEFFECTIVE [None]
  - EMPYEMA [None]
  - ESCHERICHIA INFECTION [None]
  - GALLBLADDER DISORDER [None]
  - PLEURAL EFFUSION [None]
